FAERS Safety Report 9259271 (Version 2)
Quarter: 2013Q2

REPORT INFORMATION
  Report Type: Spontaneous
  Country: US (occurrence: US)
  Receive Date: 20130426
  Receipt Date: 20130611
  Transmission Date: 20140414
  Serious: Yes (Other)
  Sender: FDA-Public Use
  Company Number: US-009507513-1304USA010584

PATIENT
  Age: 64 Year
  Sex: Female
  Weight: 62.13 kg

DRUGS (3)
  1. NEXIUM [Suspect]
     Indication: HIATUS HERNIA
     Dosage: 20 MG, QD
     Route: 048
     Dates: start: 199304
  2. NEXIUM [Suspect]
     Indication: BARRETT^S OESOPHAGUS
  3. LABETALOL HYDROCHLORIDE [Concomitant]
     Indication: HYPERTENSION
     Dosage: 100 MG, BID

REACTIONS (20)
  - Metastases to bone [Unknown]
  - Breast cancer [Unknown]
  - Nausea [Not Recovered/Not Resolved]
  - Headache [Not Recovered/Not Resolved]
  - Pain [Not Recovered/Not Resolved]
  - Malaise [Not Recovered/Not Resolved]
  - Muscle spasms [Not Recovered/Not Resolved]
  - Adverse event [Not Recovered/Not Resolved]
  - Discomfort [Unknown]
  - Anxiety [Unknown]
  - Poor quality sleep [Unknown]
  - Dehydration [Unknown]
  - Renal impairment [Unknown]
  - Eosinophil count increased [Unknown]
  - Blood pressure increased [Unknown]
  - Weight decreased [Unknown]
  - Urine output increased [Unknown]
  - Decreased appetite [Unknown]
  - Incorrect dose administered [Unknown]
  - Wrong technique in drug usage process [Unknown]
